FAERS Safety Report 17811029 (Version 1)
Quarter: 2020Q2

REPORT INFORMATION
  Report Type: Spontaneous
  Country: US (occurrence: US)
  Receive Date: 20200520
  Receipt Date: 20200520
  Transmission Date: 20200714
  Serious: Yes (Other)
  Sender: FDA-Public Use
  Company Number: None

PATIENT
  Age: 72 Year
  Sex: Female
  Weight: 150 kg

DRUGS (11)
  1. ENOXAPARIN [Concomitant]
     Active Substance: ENOXAPARIN
     Dates: start: 20200513, end: 20200520
  2. GUAIFENESIN. [Concomitant]
     Active Substance: GUAIFENESIN
     Dates: start: 20200517, end: 20200518
  3. POTASSIUM CHLORIDE. [Concomitant]
     Active Substance: POTASSIUM CHLORIDE
     Dates: start: 20200517, end: 20200518
  4. ACETAMINOPHEN. [Concomitant]
     Active Substance: ACETAMINOPHEN
     Dates: start: 20200514, end: 20200520
  5. NEBIVOLOL. [Concomitant]
     Active Substance: NEBIVOLOL
     Dates: start: 20200513, end: 20200520
  6. MELATONIN [Concomitant]
     Active Substance: MELATONIN
     Dates: start: 20200516, end: 20200516
  7. VALSARTAN. [Concomitant]
     Active Substance: VALSARTAN
     Dates: start: 20200513, end: 20200518
  8. AZITHROMYCIN ANHYDROUS. [Concomitant]
     Active Substance: AZITHROMYCIN ANHYDROUS
     Dates: start: 20200513, end: 20200518
  9. BENZONATATE. [Concomitant]
     Active Substance: BENZONATATE
     Dates: start: 20200512, end: 20200517
  10. REMDESIVIR INJECTION [Suspect]
     Active Substance: REMDESIVIR
     Indication: COVID-19
     Route: 042
     Dates: start: 20200516, end: 20200519
  11. VANCOMYCIN [Concomitant]
     Active Substance: VANCOMYCIN
     Dates: start: 20200518, end: 20200520

REACTIONS (2)
  - Alanine aminotransferase increased [None]
  - Aspartate aminotransferase increased [None]

NARRATIVE: CASE EVENT DATE: 20200518
